FAERS Safety Report 7626738-0 (Version None)
Quarter: 2011Q3

REPORT INFORMATION
  Report Type: 
  Country: None (occurrence: None)
  Receive Date: 20110721
  Receipt Date: 20110719
  Transmission Date: 20111222
  Serious: Yes (Hospitalization)
  Sender: FDA-Public Use
  Company Number: US-B.I. PHARMACEUTICALS,INC./RIDGEFIELD-2011-BP-18055BP

PATIENT
  Age: 70 Year
  Sex: Female

DRUGS (3)
  1. ASPIRIN [Concomitant]
  2. PLAVIX [Concomitant]
  3. PRADAXA [Suspect]
     Route: 048

REACTIONS (1)
  - GASTROINTESTINAL HAEMORRHAGE [None]
